FAERS Safety Report 8124046-5 (Version None)
Quarter: 2012Q1

REPORT INFORMATION
  Report Type: 
  Country: None (occurrence: None)
  Receive Date: 20120209
  Receipt Date: 20120206
  Transmission Date: 20120608
  Serious: Yes (Other)
  Sender: FDA-Public Use
  Company Number: US-PFIZER INC-2012033153

PATIENT
  Sex: Male
  Weight: 142 kg

DRUGS (8)
  1. CELEBREX [Suspect]
     Indication: OSTEOARTHRITIS
     Dosage: UNK, DAILY
     Dates: start: 20110101
  2. CYMBALTA [Suspect]
     Indication: DEPRESSION
     Dosage: 60 MG, DAILY
     Dates: start: 20110101
  3. BENADRYL [Concomitant]
     Dosage: UNK
  4. IBUPROFEN [Suspect]
     Dosage: UNK
  5. CYMBALTA [Suspect]
     Indication: ARTHRITIS
  6. NAPROXEN [Suspect]
     Dosage: UNK
  7. LIPOZENE [Suspect]
     Indication: WEIGHT LOSS DIET
     Dosage: UNK, DAILY
     Route: 048
     Dates: start: 20120101
  8. OMEPRAZOLE [Concomitant]
     Dosage: UNK

REACTIONS (2)
  - GASTRIC ULCER [None]
  - DRUG INEFFECTIVE [None]
